FAERS Safety Report 9805406 (Version 1)
Quarter: 2014Q1

REPORT INFORMATION
  Report Type: Spontaneous
  Country: US (occurrence: US)
  Receive Date: 20140109
  Receipt Date: 20140109
  Transmission Date: 20141002
  Serious: No
  Sender: FDA-Public Use
  Company Number: US-PFIZER INC-2014003299

PATIENT
  Sex: Female

DRUGS (6)
  1. PREMARIN [Suspect]
     Dosage: UNK, 3X/WEEK
  2. PREMARIN [Suspect]
     Dosage: UNK, 2X/WEEK
  3. PREMARIN [Suspect]
     Dosage: UNK, 1X/WEEK
  4. PREMARIN [Suspect]
     Dosage: UNK, DAILY
  5. PREMARIN [Suspect]
     Dosage: UNK, EVERY OTHER DAY
  6. PREMARIN [Suspect]
     Dosage: UNK, 1X/DAY

REACTIONS (3)
  - Hot flush [Unknown]
  - Nipple pain [Unknown]
  - Hyperhidrosis [Unknown]
